FAERS Safety Report 16073987 (Version 1)
Quarter: 2019Q1

REPORT INFORMATION
  Report Type: Spontaneous
  Country: US (occurrence: US)
  Receive Date: 20190314
  Receipt Date: 20190314
  Transmission Date: 20190418
  Serious: Yes (Other)
  Sender: FDA-Public Use
  Company Number: US-MALLINCKRODT-T201901460

PATIENT
  Sex: Female

DRUGS (1)
  1. H.P. ACTHAR [Suspect]
     Active Substance: CORTICOTROPIN
     Indication: PULMONARY SARCOIDOSIS
     Dosage: 20 UNITS / 0.25 ML, EVERY 3 DAYS / EVERY 72 HOURS
     Route: 058
     Dates: start: 20180728

REACTIONS (3)
  - Dialysis [Unknown]
  - Arthralgia [Recovering/Resolving]
  - Therapy cessation [Unknown]
